FAERS Safety Report 9183619 (Version 1)
Quarter: 2013Q1

REPORT INFORMATION
  Report Type: Spontaneous
  Country: US (occurrence: US)
  Receive Date: 20130322
  Receipt Date: 20130322
  Transmission Date: 20140127
  Serious: Yes (Other)
  Sender: FDA-Public Use
  Company Number: US-BRISTOL-MYERS SQUIBB COMPANY-16569766

PATIENT
  Age: 43 Year
  Sex: Male

DRUGS (1)
  1. ERBITUX [Suspect]
     Dosage: LAST DOSE: 11APR2012.

REACTIONS (1)
  - Malignant neoplasm progression [Unknown]
